FAERS Safety Report 13393460 (Version 2)
Quarter: 2017Q2

REPORT INFORMATION
  Report Type: Spontaneous
  Country: ID (occurrence: ID)
  Receive Date: 20170331
  Receipt Date: 20170508
  Transmission Date: 20170830
  Serious: Yes (Hospitalization)
  Sender: FDA-Public Use
  Company Number: ID-OTSUKA-2017_006878

PATIENT
  Age: 65 Year
  Sex: Female

DRUGS (5)
  1. MOBAFER [Concomitant]
     Indication: THROMBOTIC STROKE
     Dosage: 500 ?G, TID
     Route: 048
     Dates: start: 201703
  2. SISTENOL FC [Concomitant]
     Indication: THROMBOTIC STROKE
     Dosage: PCT 500MG, NAC 200MG, QD
     Route: 048
     Dates: start: 201703, end: 20170315
  3. DILAVASK [Concomitant]
     Indication: THROMBOTIC STROKE
     Dosage: 5 MG, QD
     Route: 048
     Dates: start: 201703, end: 20170315
  4. PLETAAL SR CAPSULE 100 MG [Suspect]
     Active Substance: CILOSTAZOL
     Indication: THROMBOTIC STROKE
     Dosage: 200 MG, QD (100 MG ONCE DAILY 2 CAPSULE)
     Route: 048
     Dates: start: 20170306, end: 20170315
  5. NEUROAID [Concomitant]
     Indication: THROMBOTIC STROKE
     Dosage: UNK, BID
     Route: 048
     Dates: start: 201703, end: 20170315

REACTIONS (2)
  - Haematemesis [Recovered/Resolved]
  - Gastritis erosive [Recovered/Resolved]

NARRATIVE: CASE EVENT DATE: 20170315
